FAERS Safety Report 25962383 (Version 1)
Quarter: 2025Q4

REPORT INFORMATION
  Report Type: Spontaneous
  Country: EU (occurrence: EU)
  Receive Date: 20251027
  Receipt Date: 20251027
  Transmission Date: 20260118
  Serious: Yes (Hospitalization)
  Sender: MYLAN
  Company Number: EU-SOL-20250313

PATIENT
  Age: 71 Year
  Sex: Male

DRUGS (36)
  1. ADRENALIN [Suspect]
     Active Substance: EPINEPHRINE
     Indication: Respiratory distress
     Dosage: UNK
  2. ADRENALIN [Suspect]
     Active Substance: EPINEPHRINE
     Dosage: UNK
     Route: 055
  3. ADRENALIN [Suspect]
     Active Substance: EPINEPHRINE
     Dosage: UNK
     Route: 055
  4. ADRENALIN [Suspect]
     Active Substance: EPINEPHRINE
     Dosage: UNK
  5. ALBUTEROL [Suspect]
     Active Substance: ALBUTEROL
     Indication: Respiratory distress
     Dosage: UNK
  6. ALBUTEROL [Suspect]
     Active Substance: ALBUTEROL
     Dosage: UNK
     Route: 055
  7. ALBUTEROL [Suspect]
     Active Substance: ALBUTEROL
     Dosage: UNK
     Route: 055
  8. ALBUTEROL [Suspect]
     Active Substance: ALBUTEROL
     Dosage: UNK
  9. HYDROCORTISONE [Suspect]
     Active Substance: HYDROCORTISONE
     Indication: Respiratory distress
     Dosage: 200 MILLIGRAM
  10. HYDROCORTISONE [Suspect]
     Active Substance: HYDROCORTISONE
     Dosage: 200 MILLIGRAM
     Route: 042
  11. HYDROCORTISONE [Suspect]
     Active Substance: HYDROCORTISONE
     Dosage: 200 MILLIGRAM
     Route: 042
  12. HYDROCORTISONE [Suspect]
     Active Substance: HYDROCORTISONE
     Dosage: 200 MILLIGRAM
  13. OXYGEN [Suspect]
     Active Substance: OXYGEN
     Indication: Respiratory distress
     Dosage: UNK
  14. OXYGEN [Suspect]
     Active Substance: OXYGEN
     Dosage: UNK
     Route: 055
  15. OXYGEN [Suspect]
     Active Substance: OXYGEN
     Dosage: UNK
     Route: 055
  16. OXYGEN [Suspect]
     Active Substance: OXYGEN
     Dosage: UNK
  17. IPRATROPIUM BROMIDE [Suspect]
     Active Substance: IPRATROPIUM BROMIDE
     Indication: Respiratory distress
     Dosage: UNK
  18. IPRATROPIUM BROMIDE [Suspect]
     Active Substance: IPRATROPIUM BROMIDE
     Dosage: UNK
     Route: 055
  19. IPRATROPIUM BROMIDE [Suspect]
     Active Substance: IPRATROPIUM BROMIDE
     Dosage: UNK
     Route: 055
  20. IPRATROPIUM BROMIDE [Suspect]
     Active Substance: IPRATROPIUM BROMIDE
     Dosage: UNK
  21. KETAMINE [Suspect]
     Active Substance: KETAMINE
     Indication: Respiratory distress
     Dosage: UNK
  22. KETAMINE [Suspect]
     Active Substance: KETAMINE
     Dosage: UNK
     Route: 065
  23. KETAMINE [Suspect]
     Active Substance: KETAMINE
     Dosage: UNK
     Route: 065
  24. KETAMINE [Suspect]
     Active Substance: KETAMINE
     Dosage: UNK
  25. ROCURONIUM [Suspect]
     Active Substance: ROCURONIUM BROMIDE
     Indication: Respiratory distress
     Dosage: UNK
  26. ROCURONIUM [Suspect]
     Active Substance: ROCURONIUM BROMIDE
     Dosage: UNK
     Route: 065
  27. ROCURONIUM [Suspect]
     Active Substance: ROCURONIUM BROMIDE
     Dosage: UNK
     Route: 065
  28. ROCURONIUM [Suspect]
     Active Substance: ROCURONIUM BROMIDE
     Dosage: UNK
  29. MAGNESIUM SULFATE [Suspect]
     Active Substance: MAGNESIUM SULFATE
     Indication: Respiratory distress
     Dosage: UNK
  30. MAGNESIUM SULFATE [Suspect]
     Active Substance: MAGNESIUM SULFATE
     Dosage: UNK
     Route: 042
  31. MAGNESIUM SULFATE [Suspect]
     Active Substance: MAGNESIUM SULFATE
     Dosage: UNK
     Route: 042
  32. MAGNESIUM SULFATE [Suspect]
     Active Substance: MAGNESIUM SULFATE
     Dosage: UNK
  33. CISATRACURIUM [Concomitant]
     Active Substance: CISATRACURIUM
     Indication: Respiratory distress
     Dosage: UNK
  34. CISATRACURIUM [Concomitant]
     Active Substance: CISATRACURIUM
     Dosage: UNK
     Route: 065
  35. CISATRACURIUM [Concomitant]
     Active Substance: CISATRACURIUM
     Dosage: UNK
     Route: 065
  36. CISATRACURIUM [Concomitant]
     Active Substance: CISATRACURIUM
     Dosage: UNK

REACTIONS (1)
  - Condition aggravated [Unknown]
